FAERS Safety Report 6938445-8 (Version None)
Quarter: 2010Q3

REPORT INFORMATION
  Report Type: 
  Country: None (occurrence: None)
  Receive Date: 20100824
  Receipt Date: 20100812
  Transmission Date: 20110219
  Serious: Yes (Death)
  Sender: FDA-Public Use
  Company Number: DE-ELI_LILLY_AND_COMPANY-DE201008003222

PATIENT
  Sex: Male

DRUGS (3)
  1. FORTEO [Suspect]
     Indication: OSTEOPOROSIS
     Dosage: UNK, DAILY (1/D)
     Route: 058
     Dates: start: 20090505
  2. CALCIUM [Concomitant]
     Dosage: 500 MG, UNK
  3. VITAMIN D [Concomitant]
     Dosage: 400 I.U., UNKNOWN

REACTIONS (1)
  - DEATH [None]
